FAERS Safety Report 7027387-8 (Version None)
Quarter: 2010Q4

REPORT INFORMATION
  Report Type: 
  Country: None (occurrence: None)
  Receive Date: 20101001
  Receipt Date: 20101001
  Transmission Date: 20110411
  Serious: No
  Sender: FDA-Public Use
  Company Number: None

PATIENT
  Sex: Female

DRUGS (1)
  1. FORTEO [Suspect]
     Indication: MUSCULOSKELETAL DISORDER
     Dosage: 600MCG/2.4ML PEN INJECT 20 MCG SUBCUTANEOUSLY EVERY DAY AS DIRECTED **EXPIRES 28 DAYS AFTER OPENING*
     Route: 058
     Dates: start: 20100925, end: 20100930

REACTIONS (2)
  - MUSCLE SPASMS [None]
  - PAIN IN EXTREMITY [None]
